FAERS Safety Report 17462683 (Version 1)
Quarter: 2020Q1

REPORT INFORMATION
  Report Type: Spontaneous
  Country: US (occurrence: US)
  Receive Date: 20200226
  Receipt Date: 20200226
  Transmission Date: 20200409
  Serious: Yes (Hospitalization)
  Sender: FDA-Public Use
  Company Number: US-TEVA-2020-US-1190228

PATIENT
  Age: 66 Year
  Sex: Female

DRUGS (2)
  1. ENOXAPARIN-SODIUM [Suspect]
     Active Substance: ENOXAPARIN SODIUM
     Indication: ANTICOAGULANT THERAPY
     Route: 065
  2. WARFARIN [Suspect]
     Active Substance: WARFARIN
     Indication: ANTICOAGULANT THERAPY
     Dosage: THE DOSE OF WARFARIN WAS INCREASED BY 25% DUE TO SUBTHERAPEUTIC INR
     Route: 065

REACTIONS (3)
  - Anticoagulation drug level above therapeutic [Recovered/Resolved]
  - Mediastinal haematoma [Recovered/Resolved]
  - Oesophageal compression [Recovered/Resolved]
